FAERS Safety Report 7315918-X (Version None)
Quarter: 2011Q1

REPORT INFORMATION
  Report Type: 
  Country: None (occurrence: None)
  Receive Date: 20110225
  Receipt Date: 20110221
  Transmission Date: 20110831
  Serious: Yes (Death, Other)
  Sender: FDA-Public Use
  Company Number: US-ROXANE LABORATORIES, INC.-2011-RO-00202RO

PATIENT
  Age: 47 Year
  Sex: Female

DRUGS (5)
  1. BEVACIZUMAB [Suspect]
     Indication: GLIOBLASTOMA MULTIFORME
  2. DEXAMETHASONE [Suspect]
     Indication: BRAIN NEOPLASM
     Dosage: 1 MG
     Route: 048
  3. TEMOZOLOMIDE [Suspect]
     Indication: GLIOBLASTOMA MULTIFORME
     Route: 048
  4. TEMOZOLOMIDE [Suspect]
     Route: 048
  5. BEVACIZUMAB [Suspect]
     Route: 048

REACTIONS (4)
  - DEATH [None]
  - SKIN ULCER [None]
  - TOXICITY TO VARIOUS AGENTS [None]
  - DRUG DEPENDENCE [None]
